FAERS Safety Report 6647274-4 (Version None)
Quarter: 2010Q1

REPORT INFORMATION
  Report Type: 
  Country: None (occurrence: None)
  Receive Date: 20100323
  Receipt Date: 20100311
  Transmission Date: 20100710
  Serious: Yes (Other)
  Sender: FDA-Public Use
  Company Number: A0851013A

PATIENT
  Age: 68 Year
  Sex: Male

DRUGS (4)
  1. ZYBAN [Suspect]
     Indication: SMOKING CESSATION THERAPY
     Dosage: 150MG TWICE PER DAY
     Route: 048
     Dates: start: 20070907, end: 20071003
  2. GABAPENTIN [Suspect]
     Indication: NEURALGIA
     Dosage: 300MG THREE TIMES PER DAY
     Route: 048
     Dates: start: 20071001, end: 20071003
  3. ALTACE [Concomitant]
     Indication: HYPERTENSION
     Dosage: 10MG TWICE PER DAY
     Dates: start: 20051223
  4. TYLENOL W/ CODEINE NO. 2 [Concomitant]
     Indication: PAIN
     Dates: start: 20070807

REACTIONS (3)
  - LIP SWELLING [None]
  - RASH [None]
  - URTICARIA [None]
